FAERS Safety Report 9869773 (Version 1)
Quarter: 2014Q1

REPORT INFORMATION
  Report Type: Spontaneous
  Country: US (occurrence: None)
  Receive Date: 20140130
  Receipt Date: 20140130
  Transmission Date: 20141002
  Serious: Yes (Hospitalization, Other)
  Sender: FDA-Public Use
  Company Number: ADR-2014-00136

PATIENT
  Age: 57 Year
  Sex: Male

DRUGS (2)
  1. LIORESAL INTRATHECAL (BACLOFEN INJECTION) [Suspect]
     Indication: PAIN
  2. FENTANYL INTRATHECAL 500 MCG/ML [Suspect]

REACTIONS (4)
  - Restless legs syndrome [None]
  - Blood pressure increased [None]
  - Pneumonia [None]
  - Cardiac aneurysm [None]
